FAERS Safety Report 13571963 (Version 1)
Quarter: 2017Q2

REPORT INFORMATION
  Report Type: Spontaneous
  Country: FR (occurrence: FR)
  Receive Date: 20170523
  Receipt Date: 20170523
  Transmission Date: 20170830
  Serious: Yes (Other)
  Sender: FDA-Public Use
  Company Number: FR-EMD SERONO-8158029

PATIENT
  Sex: Female

DRUGS (1)
  1. OVITRELLE [Suspect]
     Active Substance: CHORIOGONADOTROPIN ALFA
     Indication: IN VITRO FERTILISATION

REACTIONS (4)
  - Groin abscess [Unknown]
  - Dizziness [Unknown]
  - Drug interaction [Unknown]
  - Vomiting [Unknown]
